FAERS Safety Report 8798356 (Version 2)
Quarter: 2013Q4

REPORT INFORMATION
  Report Type: Spontaneous
  Country: US (occurrence: US)
  Receive Date: 20120920
  Receipt Date: 20131108
  Transmission Date: 20140711
  Serious: Yes (Death, Other)
  Sender: FDA-Public Use
  Company Number: US-009507513-2011SP013905

PATIENT
  Age: 33 Year
  Sex: Female
  Weight: 99.34 kg

DRUGS (3)
  1. NUVARING [Suspect]
     Indication: CONTRACEPTION
     Dates: start: 200809, end: 20091010
  2. NUVARING [Suspect]
     Dates: start: 200711, end: 2008
  3. CINNAMON [Concomitant]

REACTIONS (17)
  - Pulmonary embolism [Fatal]
  - Hypercoagulation [Recovered/Resolved]
  - Cardio-respiratory arrest [Recovered/Resolved]
  - Pelvic mass [Unknown]
  - Hypertension [Unknown]
  - Deep vein thrombosis [Recovered/Resolved]
  - Dermatitis [Unknown]
  - Trichomoniasis [Unknown]
  - Ovulation pain [Unknown]
  - Respiratory tract infection [Unknown]
  - Urine analysis abnormal [Unknown]
  - Pharyngitis [Unknown]
  - Bronchitis [Unknown]
  - Abdominal pain upper [Unknown]
  - Abdominal pain [Unknown]
  - Road traffic accident [Unknown]
  - Muscle spasms [Unknown]
